FAERS Safety Report 5128631-4 (Version None)
Quarter: 2006Q4

REPORT INFORMATION
  Report Type: 
  Country: None (occurrence: None)
  Receive Date: 20061011
  Receipt Date: 20060927
  Transmission Date: 20070319
  Serious: Yes (Other)
  Sender: FDA-Public Use
  Company Number: 230491

PATIENT
  Age: 56 Year
  Sex: Female

DRUGS (1)
  1. RAPTIVA [Suspect]
     Indication: PSORIASIS
     Dates: start: 20060501

REACTIONS (3)
  - DERMATITIS [None]
  - DRUG HYPERSENSITIVITY [None]
  - INFLUENZA LIKE ILLNESS [None]
